FAERS Safety Report 7125323-7 (Version None)
Quarter: 2010Q4

REPORT INFORMATION
  Report Type: 
  Country: None (occurrence: None)
  Receive Date: 20101129
  Receipt Date: 20101115
  Transmission Date: 20110411
  Serious: Yes (Life-Threatening, Hospitalization)
  Sender: FDA-Public Use
  Company Number: SE-SANOFI-AVENTIS-2010SA069104

PATIENT
  Age: 80 Year
  Sex: Female

DRUGS (14)
  1. MULTAQ [Suspect]
     Indication: ATRIAL FIBRILLATION
     Route: 048
     Dates: start: 20101004, end: 20101014
  2. NEXIUM [Concomitant]
  3. COZAAR [Concomitant]
  4. KALCIPOS-D [Concomitant]
  5. CRESTOR [Concomitant]
  6. METFORMIN [Concomitant]
  7. OVESTERIN [Concomitant]
  8. SALURES [Concomitant]
  9. WARAN [Concomitant]
  10. PREDNISOLONE [Concomitant]
  11. IDO-C [Concomitant]
  12. SPIRONOLACTONE [Concomitant]
  13. ATENOLOL [Concomitant]
  14. OESTRIOL ^NM PHARMA^ [Concomitant]

REACTIONS (4)
  - ANAPHYLACTIC SHOCK [None]
  - PHARYNGEAL OEDEMA [None]
  - RASH GENERALISED [None]
  - RESPIRATORY DISORDER [None]
